FAERS Safety Report 25116828 (Version 1)
Quarter: 2025Q1

REPORT INFORMATION
  Report Type: Spontaneous
  Country: GB (occurrence: GB)
  Receive Date: 20250325
  Receipt Date: 20250325
  Transmission Date: 20250409
  Serious: Yes (Other)
  Sender: BOEHRINGER INGELHEIM
  Company Number: GB-BoehringerIngelheim-2025-BI-016784

PATIENT

DRUGS (2)
  1. PRAMIPEXOLE [Suspect]
     Active Substance: PRAMIPEXOLE
     Indication: Product used for unknown indication
  2. GABAPENTIN [Concomitant]
     Active Substance: GABAPENTIN
     Indication: Product used for unknown indication

REACTIONS (1)
  - Suicidal ideation [Unknown]
